FAERS Safety Report 9187165 (Version 1)
Quarter: 2013Q1

REPORT INFORMATION
  Report Type: Spontaneous
  Country: US (occurrence: US)
  Receive Date: 20130325
  Receipt Date: 20130325
  Transmission Date: 20140127
  Serious: Yes (Hospitalization)
  Sender: FDA-Public Use
  Company Number: US-BAYER-2013-034367

PATIENT
  Age: 17 Year
  Sex: Female

DRUGS (4)
  1. YASMIN [Suspect]
  2. PEPCID [Concomitant]
     Indication: GASTROOESOPHAGEAL REFLUX DISEASE
  3. MOTRIN [Concomitant]
  4. PHENERGAN [Concomitant]

REACTIONS (1)
  - Cerebral infarction [None]
